FAERS Safety Report 24691566 (Version 1)
Quarter: 2024Q4

REPORT INFORMATION
  Report Type: Spontaneous
  Country: FR (occurrence: FR)
  Receive Date: 20241203
  Receipt Date: 20241203
  Transmission Date: 20250115
  Serious: Yes (Other)
  Sender: PFIZER
  Company Number: None

PATIENT
  Age: 1 Month
  Sex: Male
  Weight: 3.4 kg

DRUGS (7)
  1. BEVACIZUMAB [Suspect]
     Active Substance: BEVACIZUMAB
     Indication: Spinal cord neoplasm
     Dosage: 2 DF, SINGLE
     Route: 042
     Dates: start: 20241021, end: 20241104
  2. CARBOPLATIN [Suspect]
     Active Substance: CARBOPLATIN
     Indication: Spinal cord neoplasm
     Dosage: 20 MG, SINGLE
     Route: 042
     Dates: start: 20241024, end: 20241031
  3. SOLU-MEDROL [Suspect]
     Active Substance: METHYLPREDNISOLONE SODIUM SUCCINATE
     Dosage: 2.6 MG, 1X/DAY
     Route: 042
     Dates: start: 20241005, end: 202410
  4. AMLODIPINE [Concomitant]
     Active Substance: AMLODIPINE BESYLATE
     Dosage: 0.45 MG, 1X/DAY
     Route: 042
     Dates: start: 20241023
  5. RIVOTRIL [Concomitant]
     Active Substance: CLONAZEPAM
     Dosage: 0.09 MG EVER Y12 HOURS
     Route: 042
     Dates: start: 20241021
  6. AMITRIPTYLINE HYDROCHLORIDE [Concomitant]
     Active Substance: AMITRIPTYLINE HYDROCHLORIDE
     Dosage: 0.35 MG, 1X/DAY
     Route: 042
     Dates: start: 20241021
  7. MORPHINE [Concomitant]
     Active Substance: MORPHINE
     Dosage: UNK
     Route: 042
     Dates: start: 20241021

REACTIONS (2)
  - Neonatal hyponatraemia [Recovered/Resolved]
  - Off label use [Unknown]

NARRATIVE: CASE EVENT DATE: 20241021
